FAERS Safety Report 6577685-7 (Version None)
Quarter: 2010Q1

REPORT INFORMATION
  Report Type: 
  Country: None (occurrence: None)
  Receive Date: 20100211
  Receipt Date: 20100205
  Transmission Date: 20100710
  Serious: Yes (Hospitalization, Congenital Anomaly, Other)
  Sender: FDA-Public Use
  Company Number: PHEH2008US06026

PATIENT
  Sex: Female

DRUGS (22)
  1. ESTRADERM [Suspect]
     Indication: HORMONE REPLACEMENT THERAPY
     Dosage: UNK
     Dates: start: 19800101, end: 19950501
  2. PREMARIN [Suspect]
     Indication: HORMONE REPLACEMENT THERAPY
     Dosage: UNK
     Dates: start: 19800101, end: 19950501
  3. PROVERA [Suspect]
     Indication: HORMONE REPLACEMENT THERAPY
     Dosage: UNK
     Dates: start: 19800101, end: 19950501
  4. AMIODARONE HCL [Concomitant]
     Dosage: 100 MG / DAILY
  5. LOPRESSOR [Concomitant]
     Dosage: 25 MG / BID
  6. DIGOXIN [Concomitant]
     Dosage: 0.125 MG / DAILY
  7. LOTENSIN [Concomitant]
     Dosage: 20  / DAILY
  8. COUMADIN [Concomitant]
     Dosage: 2 MG / DAILY
  9. LASIX [Concomitant]
     Dosage: 40 MG / DAILY
  10. LEVOXYL [Concomitant]
     Dosage: 0.1 MG / DAILY
  11. TYLENOL-500 [Concomitant]
     Dosage: UNK
  12. KEFLEX [Concomitant]
     Dosage: 500 MG / Q6 HOURS, 4 X DAILY
  13. PRILOSEC [Concomitant]
     Dosage: 20 MG / TWICE DAILY
  14. SYNTHROID [Concomitant]
     Dosage: UNK
  15. LANOXIN [Concomitant]
     Dosage: .125 MG / DAILY
  16. SURFAK [Concomitant]
     Dosage: UNK
  17. HYDROCIL INSTANT [Concomitant]
     Dosage: UNK
  18. REGLAN [Concomitant]
     Dosage: UNK
  19. PREVACID [Concomitant]
     Dosage: UNK
  20. LEVOTHYROXINE SODIUM [Concomitant]
     Dosage: UNK
  21. XANAX [Concomitant]
     Dosage: UNK
  22. DULCOLAX [Concomitant]
     Dosage: UNK

REACTIONS (27)
  - ACUTE PRERENAL FAILURE [None]
  - AORTIC VALVE REPLACEMENT [None]
  - ARTERIOSCLEROSIS [None]
  - ARTERIOVENOUS MALFORMATION [None]
  - BRADYCARDIA [None]
  - BREAST CANCER [None]
  - CARDIAC FAILURE CONGESTIVE [None]
  - CARDIAC PACEMAKER INSERTION [None]
  - CHEST DISCOMFORT [None]
  - CHOLECYSTECTOMY [None]
  - CHOLECYSTITIS ACUTE [None]
  - CHRONIC OBSTRUCTIVE PULMONARY DISEASE [None]
  - CORONARY ARTERY BYPASS [None]
  - DYSPNOEA [None]
  - HYPERKALAEMIA [None]
  - IRON DEFICIENCY ANAEMIA [None]
  - LUNG NEOPLASM MALIGNANT [None]
  - MASTECTOMY [None]
  - NEOPLASM RECURRENCE [None]
  - OLIGURIA [None]
  - PAROTID GLAND ENLARGEMENT [None]
  - PNEUMONIA [None]
  - PULMONARY EMBOLISM [None]
  - RENAL DISORDER [None]
  - RENAL FAILURE ACUTE [None]
  - RENAL TUBULAR NECROSIS [None]
  - SURGERY [None]
